FAERS Safety Report 5852931-3 (Version None)
Quarter: 2008Q3

REPORT INFORMATION
  Report Type: 
  Country: None (occurrence: None)
  Receive Date: 20080814
  Receipt Date: 20080425
  Transmission Date: 20090109
  Serious: No
  Sender: FDA-Public Use
  Company Number: PHEH2008US04080

PATIENT
  Sex: Female

DRUGS (5)
  1. TEKTURNA HCT [Suspect]
     Indication: HYPERTENSION
     Dosage: 150 MG
  2. CLONIDINE [Concomitant]
  3. XALATAN [Concomitant]
  4. TIMOLOL [Concomitant]
  5. AZOPT [Concomitant]

REACTIONS (3)
  - EAR DISORDER [None]
  - ERYTHEMA [None]
  - NIGHT SWEATS [None]
